FAERS Safety Report 7265486-6 (Version None)
Quarter: 2011Q1

REPORT INFORMATION
  Report Type: 
  Country: None (occurrence: None)
  Receive Date: 20110131
  Receipt Date: 20110124
  Transmission Date: 20110831
  Serious: Yes (Other)
  Sender: FDA-Public Use
  Company Number: PHHY2010US89032

PATIENT
  Sex: Female

DRUGS (2)
  1. GILENYA [Suspect]
     Indication: MULTIPLE SCLEROSIS
     Dosage: 0.5 MG, QD
     Route: 048
     Dates: start: 20101217
  2. GILENYA [Suspect]
     Dosage: TWO DOSES OF GILENYA INSTEAD OF 1
     Route: 048
     Dates: start: 20101223

REACTIONS (2)
  - BREAST CANCER [None]
  - OVERDOSE [None]
